FAERS Safety Report 9736608 (Version 1)
Quarter: 2013Q4

REPORT INFORMATION
  Report Type: Spontaneous
  Country: BR (occurrence: BR)
  Receive Date: 20131206
  Receipt Date: 20131206
  Transmission Date: 20140711
  Serious: Yes (Death, Hospitalization)
  Sender: FDA-Public Use
  Company Number: BR-PFIZER INC-2013347257

PATIENT
  Age: 88 Year
  Sex: Female

DRUGS (1)
  1. LYRICA [Suspect]
     Dosage: UNK
     Dates: end: 20131113

REACTIONS (1)
  - Pneumonia [Fatal]
